FAERS Safety Report 4737081-1 (Version None)
Quarter: 2005Q3

REPORT INFORMATION
  Report Type: 
  Country: None (occurrence: None)
  Receive Date: 20050808
  Receipt Date: 20050729
  Transmission Date: 20060218
  Serious: Yes (Other)
  Sender: FDA-Public Use
  Company Number: PHBS2005IT11211

PATIENT
  Age: 66 Year
  Sex: Female

DRUGS (4)
  1. EUTIROX [Concomitant]
     Route: 048
  2. QUINAZIDE [Concomitant]
     Route: 048
  3. SOTALOL HCL [Concomitant]
     Route: 048
  4. LESCOL [Suspect]
     Indication: HYPERCHOLESTEROLAEMIA
     Dosage: 80 MG/DAY
     Route: 048
     Dates: start: 20050713, end: 20050714

REACTIONS (2)
  - MUSCULAR WEAKNESS [None]
  - SYNCOPE [None]
